FAERS Safety Report 15490010 (Version 2)
Quarter: 2018Q4

REPORT INFORMATION
  Report Type: Spontaneous
  Country: US (occurrence: US)
  Receive Date: 20181011
  Receipt Date: 20181015
  Transmission Date: 20190205
  Serious: No
  Sender: FDA-Public Use
  Company Number: US-PFIZER INC-2018409053

PATIENT
  Age: 46 Year
  Sex: Female

DRUGS (2)
  1. LOPID [Suspect]
     Active Substance: GEMFIBROZIL
     Dosage: UNK
  2. GEMFIBROZIL. [Suspect]
     Active Substance: GEMFIBROZIL
     Dosage: UNK

REACTIONS (1)
  - Drug hypersensitivity [Unknown]
